FAERS Safety Report 4762737-4 (Version None)
Quarter: 2005Q3

REPORT INFORMATION
  Report Type: 
  Country: None (occurrence: None)
  Receive Date: 20050907
  Receipt Date: 20050715
  Transmission Date: 20060218
  Serious: Yes (Other)
  Sender: FDA-Public Use
  Company Number: US-ROCHE-411221

PATIENT
  Age: 58 Year
  Sex: Female
  Weight: 59 kg

DRUGS (1)
  1. BONIVA [Suspect]
     Indication: OSTEOPENIA
     Route: 048
     Dates: start: 20050710

REACTIONS (8)
  - BACK PAIN [None]
  - CHEST DISCOMFORT [None]
  - INSOMNIA [None]
  - MOBILITY DECREASED [None]
  - MOVEMENT DISORDER [None]
  - NAUSEA [None]
  - NECK PAIN [None]
  - PAIN [None]
